FAERS Safety Report 6976602-5 (Version None)
Quarter: 2010Q3

REPORT INFORMATION
  Report Type: 
  Country: None (occurrence: None)
  Receive Date: 20100910
  Receipt Date: 20100831
  Transmission Date: 20110219
  Serious: Yes (Other)
  Sender: FDA-Public Use
  Company Number: US-PFIZER INC-2010110197

PATIENT
  Sex: Male

DRUGS (4)
  1. XANAX XR [Suspect]
  2. VESICARE [Concomitant]
  3. VITAMIN D [Concomitant]
  4. LOVAZA [Concomitant]

REACTIONS (10)
  - AGITATION [None]
  - AGORAPHOBIA [None]
  - BEDRIDDEN [None]
  - DRUG DEPENDENCE [None]
  - DRUG INTOLERANCE [None]
  - DRUG TOLERANCE [None]
  - DRUG WITHDRAWAL SYNDROME [None]
  - HORMONE LEVEL ABNORMAL [None]
  - REPETITIVE SPEECH [None]
  - WITHDRAWAL SYNDROME [None]
